FAERS Safety Report 8850478 (Version 7)
Quarter: 2017Q1

REPORT INFORMATION
  Report Type: Spontaneous
  Country: US (occurrence: US)
  Receive Date: 20121019
  Receipt Date: 20170213
  Transmission Date: 20170429
  Serious: Yes (Other)
  Sender: FDA-Public Use
  Company Number: US-009507513-1210USA006378

PATIENT
  Sex: Male
  Weight: 78.01 kg

DRUGS (2)
  1. PROPECIA [Suspect]
     Active Substance: FINASTERIDE
     Indication: ALOPECIA
     Dosage: 1 MG, QD
     Route: 048
     Dates: start: 19980514, end: 201110
  2. WELLBUTRIN XL [Suspect]
     Active Substance: BUPROPION HYDROCHLORIDE
     Indication: TOBACCO ABUSE
     Dosage: 300 MG, QD
     Dates: start: 20040921

REACTIONS (26)
  - Peyronie^s disease [Not Recovered/Not Resolved]
  - Insomnia [Unknown]
  - Surgery [Unknown]
  - Oedema peripheral [Unknown]
  - Cognitive disorder [Not Recovered/Not Resolved]
  - Prostatomegaly [Unknown]
  - Fungal infection [Unknown]
  - Penile plaque [Unknown]
  - Sialoadenitis [Unknown]
  - Tinea cruris [Unknown]
  - Haemorrhoids [Unknown]
  - Peripheral vascular disorder [Unknown]
  - Penis injury [Unknown]
  - Sexual dysfunction [Not Recovered/Not Resolved]
  - Seizure [Unknown]
  - Inguinal hernia [Unknown]
  - Alcoholism [Unknown]
  - Fatigue [Unknown]
  - Varicose vein operation [Unknown]
  - Hyperglycaemia [Unknown]
  - Hernia repair [Unknown]
  - Sinusitis [Unknown]
  - Stress [Unknown]
  - Eczema [Unknown]
  - Erectile dysfunction [Not Recovered/Not Resolved]
  - Haematospermia [Unknown]

NARRATIVE: CASE EVENT DATE: 19980910
